FAERS Safety Report 9590129 (Version 1)
Quarter: 2013Q4

REPORT INFORMATION
  Report Type: Spontaneous
  Country: US (occurrence: US)
  Receive Date: 20131003
  Receipt Date: 20131003
  Transmission Date: 20140711
  Serious: No
  Sender: FDA-Public Use
  Company Number: US-AMGEN-USASP2012074972

PATIENT
  Sex: Female
  Weight: 55.78 kg

DRUGS (5)
  1. ENBREL [Suspect]
     Indication: PSORIASIS
     Dosage: 50 MG, 2 TIMES/WK
     Route: 058
  2. MAXALT                             /01406501/ [Concomitant]
     Dosage: 10 MG, UNK
  3. ZOMIG-ZMT [Concomitant]
     Dosage: 2.5 MG, UNK
  4. SPIRONOLACTON [Concomitant]
     Dosage: 25 MG, UNK
  5. MULTIVITAMINS, PLAIN [Concomitant]
     Dosage: UNK

REACTIONS (1)
  - Vision blurred [Recovered/Resolved]
